FAERS Safety Report 24617779 (Version 1)
Quarter: 2024Q4

REPORT INFORMATION
  Report Type: Spontaneous
  Country: GB (occurrence: GB)
  Receive Date: 20241114
  Receipt Date: 20241114
  Transmission Date: 20250115
  Serious: Yes (Hospitalization, Other)
  Sender: SINOTHERAPEUTICS INC.
  Company Number: GB-SNT-000409

PATIENT
  Age: 30 Year
  Sex: Male

DRUGS (1)
  1. POSACONAZOLE [Suspect]
     Active Substance: POSACONAZOLE
     Indication: Graft versus host disease
     Route: 065

REACTIONS (5)
  - Chronic graft versus host disease in lung [Unknown]
  - Drug ineffective [Unknown]
  - Haemoptysis [Unknown]
  - Condition aggravated [Unknown]
  - Respiratory failure [Unknown]
